FAERS Safety Report 14322194 (Version 1)
Quarter: 2017Q4

REPORT INFORMATION
  Report Type: Spontaneous
  Country: FR (occurrence: FR)
  Receive Date: 20171225
  Receipt Date: 20171225
  Transmission Date: 20180321
  Serious: Yes (Other)
  Sender: FDA-Public Use
  Company Number: FR-AUROBINDO-AUR-APL-2017-46990

PATIENT
  Age: 63 Year
  Sex: Male

DRUGS (4)
  1. METHOTREXATE. [Suspect]
     Active Substance: METHOTREXATE
     Indication: RHEUMATOID ARTHRITIS
     Dosage: 20 MG, UNK
     Route: 065
  2. PREDNISONE. [Suspect]
     Active Substance: PREDNISONE
     Indication: RHEUMATOID ARTHRITIS
     Dosage: 7 MG, UNK
     Route: 065
  3. CORTIVAZOL [Suspect]
     Active Substance: CORTIVAZOL
     Dosage: UNK
     Route: 065
     Dates: start: 201312, end: 201312
  4. CORTIVAZOL [Suspect]
     Active Substance: CORTIVAZOL
     Indication: TENOSYNOVITIS
     Dosage: UNK
     Route: 065
     Dates: start: 201304, end: 201304

REACTIONS (1)
  - Phaehyphomycosis [Recovered/Resolved]
